FAERS Safety Report 7649336-1 (Version None)
Quarter: 2011Q3

REPORT INFORMATION
  Report Type: 
  Country: None (occurrence: None)
  Receive Date: 20110726
  Receipt Date: 20110712
  Transmission Date: 20111222
  Serious: Yes (Hospitalization)
  Sender: FDA-Public Use
  Company Number: 2011P1007188

PATIENT
  Age: 63 Year
  Sex: Male
  Weight: 68.0396 kg

DRUGS (8)
  1. ZOCOR [Concomitant]
  2. PLAVIX [Concomitant]
  3. TRIAMTERENE [Concomitant]
  4. ASPIRIN [Concomitant]
  5. GLYBURIDE [Suspect]
     Indication: BLOOD GLUCOSE INCREASED
     Dosage: 2.5 MG;QD;PO
     Route: 048
     Dates: start: 20090101
  6. LISINOPRIL [Concomitant]
  7. ATIVAN [Concomitant]
  8. ATENOLOL [Concomitant]

REACTIONS (4)
  - NASOPHARYNGITIS [None]
  - PRODUCT LABEL ON WRONG PRODUCT [None]
  - PRODUCT QUALITY ISSUE [None]
  - MYOCARDIAL INFARCTION [None]
